FAERS Safety Report 6842275-5 (Version None)
Quarter: 2010Q3

REPORT INFORMATION
  Report Type: 
  Country: None (occurrence: None)
  Receive Date: 20100714
  Receipt Date: 20070725
  Transmission Date: 20110219
  Serious: No
  Sender: FDA-Public Use
  Company Number: US-PFIZER INC-2007063140

PATIENT
  Sex: Female
  Weight: 86.4 kg

DRUGS (9)
  1. CHANTIX [Suspect]
     Indication: SMOKING CESSATION THERAPY
     Route: 048
     Dates: start: 20070722
  2. PROZAC [Concomitant]
  3. MELOXICAM [Concomitant]
  4. MULTIPLE VITAMINS [Concomitant]
  5. GLUCOSAMINE [Concomitant]
  6. IMITREX [Concomitant]
     Indication: MIGRAINE
  7. PREMPRO [Concomitant]
  8. PROPRANOLOL [Concomitant]
     Indication: MIGRAINE
  9. TOPAMAX [Concomitant]
     Indication: MIGRAINE

REACTIONS (1)
  - MIGRAINE [None]
